FAERS Safety Report 9444348 (Version 1)
Quarter: 2013Q3

REPORT INFORMATION
  Report Type: Spontaneous
  Country: US (occurrence: None)
  Receive Date: 20130805
  Receipt Date: 20130805
  Transmission Date: 20140515
  Serious: Yes (Death, Life-Threatening)
  Sender: FDA-Public Use
  Company Number: FK201302903

PATIENT
  Age: 24 Year
  Sex: Female

DRUGS (8)
  1. ACICLOVIR [Suspect]
     Indication: HERPES SIMPLEX HEPATITIS
     Route: 042
  2. TACROLIMUS (TACROLIMUS) [Suspect]
     Indication: IMMUNOSUPPRESSANT DRUG THERAPY
     Dosage: DISCONTINUED ON ADMISSION, UNKNOWN, RESTARTED AFTER STOPPING SIROLIMUS
  3. DIURETICS [Suspect]
     Indication: PRODUCT USED FOR UNKNOWN INDICATION
     Dosage: 1 IN 1 D
  4. MYCOPHENOLATE MOFETIL [Concomitant]
  5. PREDNISONE [Concomitant]
  6. SIROLIMUS [Concomitant]
  7. HAEMODIALYTICS AND HAEMOFILTRATES [Concomitant]
  8. VASOPRESSORS [Concomitant]

REACTIONS (5)
  - Cardiac failure [None]
  - Renal failure [None]
  - Shock haemorrhagic [None]
  - Gastrointestinal haemorrhage [None]
  - Cardiogenic shock [None]
